FAERS Safety Report 5314165-0 (Version None)
Quarter: 2007Q2

REPORT INFORMATION
  Report Type: 
  Country: None (occurrence: None)
  Receive Date: 20070426
  Receipt Date: 20070411
  Transmission Date: 20071010
  Serious: Yes (Hospitalization)
  Sender: FDA-Public Use
  Company Number: 2007000649

PATIENT
  Age: 54 Year
  Sex: Female

DRUGS (13)
  1. ERLOTINIB (TABLET) [Suspect]
     Indication: NON-SMALL CELL LUNG CANCER
     Dosage: 150 MG (QD), ORAL
     Route: 048
     Dates: start: 20070226
  2. CISPLATIN [Suspect]
     Indication: NON-SMALL CELL LUNG CANCER
     Dosage: 80 MG (Q21DAYS), INTRAVENOUS
     Route: 042
     Dates: start: 20061117
  3. GEMCITABINE [Suspect]
     Indication: NON-SMALL CELL LUNG CANCER
     Dosage: 1250 MG (2 X PER 21  DAYS), INTRAVENOUS
     Route: 042
     Dates: start: 20061117
  4. ZOLPIDEM TARTRATE [Concomitant]
  5. MORPHINE [Concomitant]
  6. CLASTOBAN (CLODRONATE DISODIUM) [Concomitant]
  7. HYDROXYZINE [Concomitant]
  8. AMITRIPTYLINE HCL [Concomitant]
  9. DUPHALAC [Concomitant]
  10. PANTOPRAZOLE SODIUM [Concomitant]
  11. ACETAMINOPHEN [Concomitant]
  12. HALOPERIDOL [Concomitant]
  13. VITAMIN B12 [Concomitant]

REACTIONS (2)
  - BACK PAIN [None]
  - MENTAL DISORDER [None]
